FAERS Safety Report 23825804 (Version 3)
Quarter: 2025Q1

REPORT INFORMATION
  Report Type: Spontaneous
  Country: CA (occurrence: CA)
  Receive Date: 20240507
  Receipt Date: 20250116
  Transmission Date: 20250409
  Serious: Yes (Other)
  Sender: AMARIN
  Company Number: CA-Amarin Pharma  Inc-2024AMR000049

PATIENT
  Age: 74 Year
  Sex: Male
  Weight: 81.8 kg

DRUGS (30)
  1. VASCEPA [Suspect]
     Active Substance: ICOSAPENT ETHYL
     Indication: Blood triglycerides increased
     Dates: start: 202105, end: 202312
  2. VASCEPA [Suspect]
     Active Substance: ICOSAPENT ETHYL
     Dosage: BREAKFAST, SUPPER
     Dates: start: 202312
  3. METOPROLOL TARTRATE [Concomitant]
     Active Substance: METOPROLOL TARTRATE
     Indication: Blood pressure abnormal
     Dosage: 1 IN BREAKFAST 1 IN SUPPER
     Dates: start: 202312
  4. CLOPIDOGREL [Concomitant]
     Active Substance: CLOPIDOGREL BISULFATE
     Dates: start: 202312
  5. ASPIRIN [Concomitant]
     Active Substance: ASPIRIN
     Dates: start: 202403
  6. CRESTOR [Concomitant]
     Active Substance: ROSUVASTATIN CALCIUM
     Dosage: AT SUPPER
     Dates: start: 202312
  7. EZETIMIBE [Concomitant]
     Active Substance: EZETIMIBE
     Dosage: AT SUPPER
     Dates: start: 202312
  8. FERROUS FUMARATE [Concomitant]
     Active Substance: FERROUS FUMARATE
     Dosage: AT SUPPER
     Dates: start: 202312
  9. MYRBETRIQ [Concomitant]
     Active Substance: MIRABEGRON
     Indication: Hypertonic bladder
     Dosage: 1 IN BREAKFAST 1 IN SUPPER
     Dates: start: 202312
  10. ALFUZOSIN [Concomitant]
     Active Substance: ALFUZOSIN
     Indication: Prostatomegaly
     Dosage: WITH SUPPER
     Dates: start: 202312
  11. PANTOPRAZOLE [Concomitant]
     Active Substance: PANTOPRAZOLE
     Dosage: 1 IN BREAKFAST 1 IN SUPPER
     Dates: start: 202312
  12. LEVOTHYROXINE [Concomitant]
     Active Substance: LEVOTHYROXINE
     Dosage: WITH BREAKFAST
     Dates: start: 202312
  13. DIVALPROEX SODIUM [Concomitant]
     Active Substance: DIVALPROEX SODIUM
     Indication: Anxiety
     Dosage: BREAKFAST
     Dates: start: 202312
  14. DIVALPROEX SODIUM [Concomitant]
     Active Substance: DIVALPROEX SODIUM
  15. TEMAZEPAM [Concomitant]
     Active Substance: TEMAZEPAM
     Dosage: 2 TABLET BY MOUTH AT BEDTIME
     Dates: start: 202312
  16. JUBLIA [Concomitant]
     Active Substance: EFINACONAZOLE
     Dates: start: 202312
  17. SPIRIVA RESPIMAT [Concomitant]
     Active Substance: TIOTROPIUM BROMIDE
     Dates: start: 202312
  18. SPIRIVA RESPIMAT [Concomitant]
     Active Substance: TIOTROPIUM BROMIDE
     Indication: Emphysema
  19. JANUVIA [Concomitant]
     Active Substance: SITAGLIPTIN PHOSPHATE
     Indication: Diabetes mellitus
     Dosage: AT SUPPER
     Dates: start: 202312
  20. METAMUCIL [Concomitant]
     Active Substance: PLANTAGO SEED
     Dates: start: 202403
  21. VITAMIN D NOS [Concomitant]
     Active Substance: CHOLECALCIFEROL\ERGOCALCIFEROL
     Dosage: AT SUPPER
     Dates: start: 202312
  22. ALPRAZOLAM [Concomitant]
     Active Substance: ALPRAZOLAM
     Indication: Anxiety
     Dates: start: 202312
  23. ALPRAZOLAM [Concomitant]
     Active Substance: ALPRAZOLAM
     Indication: Fear
  24. VITAMIN B COMPLEX [Concomitant]
     Active Substance: CYANOCOBALAMIN\DEXPANTHENOL\NIACINAMIDE\PYRIDOXINE HYDROCHLORIDE\RIBOFLAVIN 5^-PHOSPHATE SODIUM\THIA
     Dosage: AT BREAKFAST
     Dates: start: 202312
  25. GLICLAZIDE [Concomitant]
     Active Substance: GLICLAZIDE
     Indication: Diabetes mellitus
     Dates: start: 202312
  26. COENZYME Q10 [Concomitant]
     Active Substance: DIETARY SUPPLEMENT\UBIDECARENONE
     Dates: start: 202312
  27. DOMPERIDONE [Concomitant]
     Active Substance: DOMPERIDONE
     Dates: start: 202312
  28. MELATONIN [Concomitant]
     Active Substance: MELATONIN
     Dosage: AT BEDTIME
     Dates: start: 202312
  29. ALEVE [Concomitant]
     Active Substance: NAPROXEN SODIUM
     Indication: Pain
     Dates: start: 202312
  30. POTASSIUM [Concomitant]
     Active Substance: POTASSIUM
     Dates: start: 202312

REACTIONS (10)
  - Chest pain [Not Recovered/Not Resolved]
  - Oedema [Recovering/Resolving]
  - Atrial fibrillation [Unknown]
  - Haemoglobin decreased [Unknown]
  - Gastrointestinal haemorrhage [Unknown]
  - Ureteric operation [Unknown]
  - Myocardial infarction [Unknown]
  - Chromaturia [Unknown]
  - Somnolence [Unknown]
  - Muscular weakness [Unknown]

NARRATIVE: CASE EVENT DATE: 20231201
